FAERS Safety Report 6932508-9 (Version None)
Quarter: 2010Q3

REPORT INFORMATION
  Report Type: 
  Country: None (occurrence: None)
  Receive Date: 20100819
  Receipt Date: 20100806
  Transmission Date: 20110219
  Serious: Yes (Hospitalization, Other)
  Sender: FDA-Public Use
  Company Number: US-ELI_LILLY_AND_COMPANY-US201008002705

PATIENT
  Age: 42 Year
  Sex: Female

DRUGS (7)
  1. FLUOXETINE HYDROCHLORIDE [Suspect]
     Indication: DEPRESSION
  2. CYMBALTA [Suspect]
     Indication: DEPRESSION
     Dosage: 30 MG, DAILY (1/D)
  3. CYMBALTA [Suspect]
     Dosage: 60 MG, DAILY (1/D)
  4. ASCORBIC ACID [Concomitant]
  5. VITAMINS [Concomitant]
  6. KLONOPIN [Concomitant]
     Indication: SLEEP DISORDER
     Dosage: UNK, 2/D
  7. ROXICODONE [Concomitant]
     Indication: PAIN

REACTIONS (7)
  - CHONDROPATHY [None]
  - CRYING [None]
  - DRUG INEFFECTIVE [None]
  - EYE INFECTION STAPHYLOCOCCAL [None]
  - EYE OPERATION [None]
  - INSOMNIA [None]
  - JOINT SWELLING [None]
